FAERS Safety Report 9117145 (Version 2)
Quarter: 2013Q3

REPORT INFORMATION
  Report Type: Spontaneous
  Country: GB (occurrence: GB)
  Receive Date: 20130208
  Receipt Date: 20130809
  Transmission Date: 20140515
  Serious: Yes (Hospitalization)
  Sender: FDA-Public Use
  Company Number: GB-JNJFOC-20130201080

PATIENT
  Age: 71 Year
  Sex: Male
  Weight: 55.8 kg

DRUGS (6)
  1. SIMPONI [Suspect]
     Indication: ANKYLOSING SPONDYLITIS
     Route: 058
     Dates: start: 20120807
  2. SIMPONI [Suspect]
     Indication: ANKYLOSING SPONDYLITIS
     Route: 058
     Dates: start: 20130107
  3. OMEPRAZOLE [Concomitant]
     Route: 065
  4. PREDNISOLONE [Concomitant]
     Indication: PRODUCT USED FOR UNKNOWN INDICATION
     Route: 065
  5. VITAMIN B CO STRONG [Concomitant]
     Dosage: *2
     Route: 065
  6. CALCICHEW D3 FORTE [Concomitant]
     Dosage: *2
     Route: 065

REACTIONS (2)
  - Renal disorder [Recovered/Resolved]
  - Pneumonia [Recovered/Resolved]
